FAERS Safety Report 8130646 (Version 3)
Quarter: 2012Q4

REPORT INFORMATION
  Report Type: 
  Country: HU (occurrence: HU)
  Receive Date: 20110912
  Receipt Date: 20121009
  Transmission Date: 20130627
  Serious: Yes (Other)
  Sender: FDA-Public Use
  Company Number: HU-PFIZER INC-2011209025

PATIENT
  Age: 69 Year
  Sex: Female
  Weight: 80 kg

DRUGS (13)
  1. LYRICA [Suspect]
     Indication: NEURALGIA
     Dosage: 75 mg, 2x/day
     Route: 048
     Dates: start: 20110814, end: 20110822
  2. MELOXEP [Concomitant]
     Dosage: UNK
     Route: 048
  3. MELOXAN [Concomitant]
     Dosage: UNK
     Route: 048
  4. NORTIVAN [Concomitant]
     Dosage: UNK
     Route: 048
     Dates: start: 2011
  5. MYDERISON [Concomitant]
     Dosage: UNK
     Route: 048
  6. DICLAC [Concomitant]
     Dosage: UNK
     Route: 048
  7. EUPHYLONG [Concomitant]
     Dosage: UNK
     Route: 048
  8. HUMULIN [Concomitant]
     Dosage: UNK
     Dates: start: 1998
  9. MERCKFORMIN [Concomitant]
     Dosage: UNK
     Route: 048
  10. MEFORAL [Concomitant]
     Dosage: UNK
     Route: 048
  11. MILURIT [Concomitant]
     Dosage: UNK
     Route: 048
  12. LISONORM [Concomitant]
     Dosage: UNK
     Route: 048
  13. CORINFAR [Concomitant]
     Dosage: UNK
     Route: 048

REACTIONS (7)
  - Eye swelling [Recovering/Resolving]
  - Oedema peripheral [Recovering/Resolving]
  - Hypertension [Recovered/Resolved]
  - Rash [Recovered/Resolved]
  - Tinnitus [Not Recovered/Not Resolved]
  - Diarrhoea [Recovered/Resolved]
  - Pruritus [Not Recovered/Not Resolved]
